FAERS Safety Report 7103385-0 (Version None)
Quarter: 2010Q4

REPORT INFORMATION
  Report Type: 
  Country: None (occurrence: None)
  Receive Date: 20101115
  Receipt Date: 20101101
  Transmission Date: 20110411
  Serious: Yes (Hospitalization, Other)
  Sender: FDA-Public Use
  Company Number: US-SHIONOGI USA, INC-2010000068

PATIENT
  Age: 7 Month
  Sex: Female

DRUGS (1)
  1. ORAPRED ORAL SOLUTION [Suspect]
     Indication: HAEMANGIOMA
     Dosage: 15 MG, QD
     Route: 048

REACTIONS (4)
  - HAEMANGIOMA [None]
  - INFECTION IN AN IMMUNOCOMPROMISED HOST [None]
  - NEOPLASM PROGRESSION [None]
  - PNEUMOCYSTIS JIROVECI PNEUMONIA [None]
